FAERS Safety Report 16232072 (Version 1)
Quarter: 2019Q2

REPORT INFORMATION
  Report Type: Report from Study
  Country: DE (occurrence: DE)
  Receive Date: 20190424
  Receipt Date: 20190424
  Transmission Date: 20190711
  Serious: Yes (Hospitalization, Other)
  Sender: FDA-Public Use
  Company Number: DE-ROCHE-2232422

PATIENT
  Age: 84 Year
  Sex: Male

DRUGS (15)
  1. RITUXIMAB. [Suspect]
     Active Substance: RITUXIMAB
     Dosage: MOST RECENT DOSE OF RITUXIMAB (500 MG) RECEIVED ON 16/JUL/2018
     Route: 065
     Dates: start: 20180122
  2. TORASEMIDE [Concomitant]
     Active Substance: TORSEMIDE
  3. METAMIZOLE [Concomitant]
     Active Substance: METAMIZOLE
  4. RITUXIMAB. [Suspect]
     Active Substance: RITUXIMAB
     Indication: RHEUMATOID ARTHRITIS
     Dosage: MOST RECENT DOSE OF RITUXIMAB (1000 MG) RECEIVED ON 11/JUL/2017.
     Route: 065
  5. MACROGOL [Concomitant]
     Active Substance: POLYETHYLENE GLYCOLS
  6. COLECALCIFEROL [Concomitant]
     Active Substance: CHOLECALCIFEROL
  7. METHOTREXATE. [Suspect]
     Active Substance: METHOTREXATE
     Indication: RHEUMATOID ARTHRITIS
     Route: 065
  8. SPIRONOLACTONE. [Concomitant]
     Active Substance: SPIRONOLACTONE
  9. PANTOPRAZOLE [Concomitant]
     Active Substance: PANTOPRAZOLE
  10. BISOPROLOL [Concomitant]
     Active Substance: BISOPROLOL
  11. RITUXIMAB. [Suspect]
     Active Substance: RITUXIMAB
     Route: 065
     Dates: start: 20180716
  12. TILIDINE [Concomitant]
     Active Substance: TILIDINE
  13. RIVAROXABAN [Concomitant]
     Active Substance: RIVAROXABAN
  14. PREDNISOLONE. [Concomitant]
     Active Substance: PREDNISOLONE
  15. VITAMIN B COMPLEX [Concomitant]
     Active Substance: CYANOCOBALAMIN\DEXPANTHENOL\NIACINAMIDE\PYRIDOXINE HYDROCHLORIDE\RIBOFLAVIN 5^-PHOSPHATE SODIUM\THIAMINE HYDROCHLORIDE\VITAMIN B COMPLEX

REACTIONS (4)
  - Rotator cuff syndrome [Not Recovered/Not Resolved]
  - Humerus fracture [Not Recovered/Not Resolved]
  - Radial nerve injury [Not Recovered/Not Resolved]
  - Peripheral nerve paresis [Not Recovered/Not Resolved]

NARRATIVE: CASE EVENT DATE: 20180524
